FAERS Safety Report 7399262-0 (Version None)
Quarter: 2011Q2

REPORT INFORMATION
  Report Type: 
  Country: None (occurrence: None)
  Receive Date: 20110407
  Receipt Date: 20110330
  Transmission Date: 20111010
  Serious: Yes (Hospitalization, Disabling)
  Sender: FDA-Public Use
  Company Number: US-KINGPHARMUSA00001-K201100363

PATIENT
  Age: 49 Year
  Sex: Male
  Weight: 98.413 kg

DRUGS (6)
  1. EMBEDA [Suspect]
     Indication: BACK PAIN
     Dosage: 80 MG EVERY 12 HOURS
     Route: 048
     Dates: start: 20110101, end: 20110323
  2. EMBEDA [Suspect]
     Indication: NECK PAIN
  3. OXYCODONE HCL [Concomitant]
     Indication: NECK PAIN
  4. OXYCODONE HCL [Concomitant]
     Indication: BACK PAIN
  5. XANAX [Concomitant]
  6. SOMA [Concomitant]
     Indication: MUSCLE SPASMS

REACTIONS (6)
  - PAIN IN EXTREMITY [None]
  - DYSSTASIA [None]
  - OEDEMA PERIPHERAL [None]
  - GOUT [None]
  - RASH [None]
  - ABDOMINAL PAIN UPPER [None]
